FAERS Safety Report 5109508-7 (Version None)
Quarter: 2006Q3

REPORT INFORMATION
  Report Type: 
  Country: None (occurrence: None)
  Receive Date: 20060918
  Receipt Date: 20060904
  Transmission Date: 20061208
  Serious: Yes (Death, Hospitalization)
  Sender: FDA-Public Use
  Company Number: 2006107034

PATIENT
  Age: 73 Year
  Sex: Male
  Weight: 97 kg

DRUGS (10)
  1. SUTENT [Suspect]
     Indication: METASTATIC RENAL CELL CARCINOMA
     Dosage: 50 MG (50 MG, 1 IN 1 D), ORAL
     Route: 048
     Dates: start: 20060810, end: 20060830
  2. IPNOVEL                    (MIDAZOLAM) [Suspect]
     Indication: MOOD ALTERED
     Dosage: INTRAVENOUS
     Route: 042
     Dates: start: 20060828, end: 20060830
  3. NORVASC [Concomitant]
  4. LAMICTAL [Concomitant]
  5. CARDIRENE                (ACETYLSALICYLATE LYSINE) [Concomitant]
  6. RYTMONORM        (PROPAFENONE HYDROCHLORIDE) [Concomitant]
  7. LANSOX          (LANSOPRAZOLE) [Concomitant]
  8. MEDROL ACETATE [Concomitant]
  9. PROTIADENE               (DOSULEPIN HYDROCHLORIDE) [Concomitant]
  10. NADROPARIN (NADROPARIN) [Concomitant]

REACTIONS (6)
  - CONFUSIONAL STATE [None]
  - FATIGUE [None]
  - HAEMATEMESIS [None]
  - HYPERBILIRUBINAEMIA [None]
  - MUCOSAL INFLAMMATION [None]
  - THROMBOCYTOPENIA [None]
